FAERS Safety Report 8767053 (Version 1)
Quarter: 2012Q4

REPORT INFORMATION
  Report Type: 
  Country: NL (occurrence: NL)
  Receive Date: 20120904
  Receipt Date: 20120904
  Transmission Date: 20130627
  Serious: Yes (Other)
  Sender: FDA-Public Use
  Company Number: PHHY2010NL094765

PATIENT
  Sex: Female

DRUGS (5)
  1. BISOLBRUIS [Suspect]
  2. DOXYCYCLINE [Suspect]
  3. IRBESARTAN [Concomitant]
  4. CODEINE [Concomitant]
  5. COMBINATION MEDICATIONS [Concomitant]

REACTIONS (2)
  - Pharyngeal oedema [Not Recovered/Not Resolved]
  - Dyspnoea [Not Recovered/Not Resolved]
